FAERS Safety Report 5211316-3 (Version None)
Quarter: 2007Q1

REPORT INFORMATION
  Report Type: 
  Country: None (occurrence: None)
  Receive Date: 20070112
  Receipt Date: 20070103
  Transmission Date: 20070707
  Serious: Yes (Hospitalization)
  Sender: FDA-Public Use
  Company Number: 2006US002447

PATIENT
  Age: 46 Year
  Sex: Female

DRUGS (3)
  1. PROGRAF [Suspect]
     Indication: PROPHYLAXIS AGAINST TRANSPLANT REJECTION
     Dosage: 7 MG, BID, ORAL
     Route: 048
     Dates: start: 20051104
  2. PROGRAF [Suspect]
     Indication: PROPHYLAXIS AGAINST TRANSPLANT REJECTION
     Dosage: 7 MG, BID, ORAL
     Route: 048
     Dates: start: 20060519
  3. CELLCEPT [Concomitant]

REACTIONS (2)
  - CELLULITIS [None]
  - MYOSITIS [None]
